FAERS Safety Report 9120467 (Version 1)
Quarter: 2013Q1

REPORT INFORMATION
  Report Type: Spontaneous
  Country: US (occurrence: US)
  Receive Date: 20130226
  Receipt Date: 20130226
  Transmission Date: 20140127
  Serious: Yes (Death, Hospitalization)
  Sender: FDA-Public Use
  Company Number: US-ROCHE-1193932

PATIENT
  Age: 53 Year
  Sex: Female

DRUGS (6)
  1. CLONAZEPAM [Suspect]
     Indication: PRODUCT USED FOR UNKNOWN INDICATION
     Route: 065
  2. COCAINE [Suspect]
     Indication: PRODUCT USED FOR UNKNOWN INDICATION
     Route: 065
  3. NITRIC ACID [Suspect]
     Indication: PRODUCT USED FOR UNKNOWN INDICATION
     Route: 048
  4. NITRIC ACID [Suspect]
     Dosage: OVERDOSE
     Route: 048
  5. SELENIUM [Suspect]
     Indication: PRODUCT USED FOR UNKNOWN INDICATION
     Route: 048
  6. SELENIUM [Suspect]
     Dosage: OVERDOSE
     Route: 048

REACTIONS (1)
  - Toxicity to various agents [Fatal]
